FAERS Safety Report 6423674-2 (Version None)
Quarter: 2009Q4

REPORT INFORMATION
  Report Type: 
  Country: None (occurrence: None)
  Receive Date: 20091102
  Receipt Date: 20091026
  Transmission Date: 20100525
  Serious: Yes (Hospitalization, Other)
  Sender: FDA-Public Use
  Company Number: US-MERCK-0810USA02084

PATIENT
  Age: 71 Year
  Sex: Female
  Weight: 51 kg

DRUGS (12)
  1. FOSAMAX [Suspect]
     Route: 048
     Dates: start: 20010501, end: 20020201
  2. FOSAMAX [Suspect]
     Route: 048
     Dates: start: 20020201, end: 20071101
  3. FOSAMAX [Suspect]
     Route: 048
     Dates: end: 20080110
  4. METFORMIN [Concomitant]
     Route: 065
  5. GLYBURIDE [Concomitant]
     Route: 065
  6. HYDROCHLOROTHIAZIDE [Concomitant]
     Route: 065
  7. ZOCOR [Concomitant]
     Route: 048
  8. VITAMIN D (UNSPECIFIED) [Concomitant]
     Route: 065
  9. CALCIUM (UNSPECIFIED) [Concomitant]
     Route: 065
  10. MAGNESIUM (UNSPECIFIED) [Concomitant]
     Route: 065
  11. ENALAPRIL MALEATE [Concomitant]
     Route: 065
  12. NIFEDIPINE [Concomitant]
     Route: 065

REACTIONS (31)
  - ABDOMINAL PAIN UPPER [None]
  - ABSCESS ORAL [None]
  - ANXIETY [None]
  - BACK DISORDER [None]
  - DENTAL CARIES [None]
  - DRY SKIN [None]
  - FRACTURE [None]
  - GASTROINTESTINAL HAEMORRHAGE [None]
  - GINGIVAL BLEEDING [None]
  - GINGIVAL INFECTION [None]
  - GINGIVAL PAIN [None]
  - GOUT [None]
  - HAEMATOCHEZIA [None]
  - HYPERCHOLESTEROLAEMIA [None]
  - HYPERPLASIA [None]
  - HYPERTENSION [None]
  - IMPAIRED HEALING [None]
  - INTESTINAL POLYP [None]
  - JAW DISORDER [None]
  - MUSCLE SPASMS [None]
  - OSTEOMYELITIS [None]
  - OSTEONECROSIS [None]
  - PAIN [None]
  - PARAESTHESIA [None]
  - RIB FRACTURE [None]
  - SYNCOPE [None]
  - TACHYCARDIA [None]
  - TOOTH DISORDER [None]
  - TOOTH INFECTION [None]
  - TYPE 2 DIABETES MELLITUS [None]
  - VOMITING [None]
